FAERS Safety Report 7684223-4 (Version None)
Quarter: 2011Q3

REPORT INFORMATION
  Report Type: 
  Country: None (occurrence: None)
  Receive Date: 20110815
  Receipt Date: 20110811
  Transmission Date: 20111222
  Serious: Yes (Hospitalization)
  Sender: FDA-Public Use
  Company Number: JP-MERCK-1108USA01602

PATIENT

DRUGS (2)
  1. URINORM [Suspect]
     Route: 048
  2. ZETIA [Suspect]
     Route: 048

REACTIONS (1)
  - LIVER DISORDER [None]
